FAERS Safety Report 5197083-0 (Version None)
Quarter: 2007Q1

REPORT INFORMATION
  Report Type: 
  Country: None (occurrence: None)
  Receive Date: 20070103
  Receipt Date: 20061220
  Transmission Date: 20070707
  Serious: Yes (Hospitalization)
  Sender: FDA-Public Use
  Company Number: US-ELI_LILLY_AND_COMPANY-US200612003733

PATIENT
  Age: 91 Year
  Sex: Female

DRUGS (2)
  1. HUMULIN 70/30 [Suspect]
     Indication: DIABETES MELLITUS
     Dosage: UNK, UNKNOWN
     Dates: start: 20060928
  2. HUMALOG MIX 75/25 [Suspect]
     Indication: DIABETES MELLITUS
     Dosage: UNK, UNKNOWN
     Dates: start: 20010101

REACTIONS (2)
  - VIRAL INFECTION [None]
  - VISUAL ACUITY REDUCED [None]
